FAERS Safety Report 9687684 (Version 2)
Quarter: 2014Q1

REPORT INFORMATION
  Report Type: Spontaneous
  Country: US (occurrence: US)
  Receive Date: 20131114
  Receipt Date: 20140218
  Transmission Date: 20141002
  Serious: Yes (Other)
  Sender: FDA-Public Use
  Company Number: US-PFIZER INC-2013321394

PATIENT
  Age: 79 Year
  Sex: Male

DRUGS (2)
  1. SUTENT [Suspect]
     Indication: MALIGNANT NEOPLASM OF RENAL PELVIS
     Dosage: 50 MG, 1X/DAY, 4 WKS ON, 2WKS OFF
     Route: 048
     Dates: start: 20130627, end: 20131105
  2. SUTENT [Suspect]
     Dosage: 25 MG, 1X/DAY, 4 WKS ON, 2WKS OFF
     Route: 048
     Dates: start: 20131106

REACTIONS (4)
  - Renal impairment [Unknown]
  - Hepatic function abnormal [Unknown]
  - Diarrhoea [Unknown]
  - Impaired healing [Unknown]
